FAERS Safety Report 12429599 (Version 1)
Quarter: 2016Q2

REPORT INFORMATION
  Report Type: Spontaneous
  Country: US (occurrence: US)
  Receive Date: 20160602
  Receipt Date: 20160602
  Transmission Date: 20160815
  Serious: No
  Sender: FDA-Public Use
  Company Number: US-DUSA PHARMACEUTICALS, INC.-1053116

PATIENT
  Age: 40 Year
  Sex: Female

DRUGS (1)
  1. LEVULAN KERASTICK [Suspect]
     Active Substance: AMINOLEVULINIC ACID HYDROCHLORIDE
     Indication: SKIN DISORDER
     Route: 061
     Dates: start: 20151115, end: 20151115

REACTIONS (2)
  - Dermatitis acneiform [Unknown]
  - Rash pustular [Unknown]
